FAERS Safety Report 6633670-8 (Version None)
Quarter: 2010Q1

REPORT INFORMATION
  Report Type: 
  Country: None (occurrence: None)
  Receive Date: 20100312
  Receipt Date: 20100308
  Transmission Date: 20100710
  Serious: Yes (Hospitalization)
  Sender: FDA-Public Use
  Company Number: BR-AMGEN-ICO224403

PATIENT
  Sex: Male

DRUGS (16)
  1. DARBEPOETIN ALFA [Suspect]
     Indication: RENAL FAILURE CHRONIC
     Route: 058
     Dates: start: 20061004, end: 20070507
  2. CAPTOPRIL [Concomitant]
     Route: 048
     Dates: start: 20070301
  3. FUROSEMIDE [Concomitant]
     Route: 048
     Dates: start: 20050101
  4. CARVEDILOL [Concomitant]
     Route: 048
     Dates: start: 20050101
  5. SPIRONOLACTONE [Concomitant]
     Route: 048
     Dates: start: 20030101
  6. DIGOXIN [Concomitant]
     Route: 048
     Dates: start: 20030101
  7. ASPIRIN [Concomitant]
     Route: 048
     Dates: start: 20050101
  8. FOLATE SODIUM [Concomitant]
     Route: 048
     Dates: start: 20050101
  9. VITAMIN B COMPLEX CAP [Concomitant]
     Route: 048
     Dates: start: 20050101
  10. ATORVASTATIN CALCIUM [Concomitant]
     Route: 048
     Dates: start: 20060301
  11. CALCITRIOL [Concomitant]
     Route: 048
     Dates: start: 20060901
  12. NPH INSULIN [Concomitant]
     Route: 058
     Dates: start: 20070301
  13. NPH INSULIN [Concomitant]
     Route: 058
     Dates: start: 20070301
  14. NPH INSULIN [Concomitant]
     Route: 058
     Dates: start: 20070301
  15. REGULAR ILETIN I [Concomitant]
     Route: 058
     Dates: start: 20070301
  16. FERROUS SULFATE TAB [Concomitant]
     Route: 048
     Dates: start: 20060922

REACTIONS (1)
  - RENAL FAILURE CHRONIC [None]
